FAERS Safety Report 16663703 (Version 1)
Quarter: 2019Q3

REPORT INFORMATION
  Report Type: Spontaneous
  Country: CA (occurrence: CA)
  Receive Date: 20190802
  Receipt Date: 20190802
  Transmission Date: 20191004
  Serious: Yes (Hospitalization)
  Sender: FDA-Public Use
  Company Number: CA-ELI_LILLY_AND_COMPANY-CA201907016817

PATIENT
  Age: 61 Year
  Sex: Male

DRUGS (4)
  1. CETUXIMAB. [Suspect]
     Active Substance: CETUXIMAB
     Dosage: 250 MG/M2, WEEKLY (1/W)
     Route: 042
  2. OMEPRAZOLE. [Concomitant]
     Active Substance: OMEPRAZOLE
     Indication: GASTROOESOPHAGEAL REFLUX DISEASE
     Dosage: UNK, UNKNOWN
     Route: 065
  3. CETUXIMAB. [Suspect]
     Active Substance: CETUXIMAB
     Indication: NASOPHARYNGEAL CANCER
     Dosage: 400 MG/M2, UNK
     Route: 042
  4. VERAPAMIL [Concomitant]
     Active Substance: VERAPAMIL HYDROCHLORIDE
     Indication: SUPRAVENTRICULAR TACHYCARDIA
     Dosage: UNK, UNKNOWN
     Route: 065

REACTIONS (10)
  - Post procedural haematoma [Recovered/Resolved]
  - Dysphagia [Unknown]
  - Radiation skin injury [Unknown]
  - Fatigue [Recovering/Resolving]
  - Abdominal pain [Recovered/Resolved]
  - Off label use [Unknown]
  - Odynophagia [Unknown]
  - Weight decreased [Recovering/Resolving]
  - Stomatitis [Unknown]
  - Dermatitis acneiform [Unknown]
